APPROVED DRUG PRODUCT: MORPHINE SULFATE
Active Ingredient: MORPHINE SULFATE
Strength: 0.5MG/ML
Dosage Form/Route: INJECTABLE;INJECTION
Application: N019917 | Product #001
Applicant: ICU MEDICAL INC
Approved: Oct 30, 1992 | RLD: No | RS: No | Type: DISCN